FAERS Safety Report 7305705-0 (Version None)
Quarter: 2011Q1

REPORT INFORMATION
  Report Type: 
  Country: None (occurrence: None)
  Receive Date: 20110222
  Receipt Date: 20110214
  Transmission Date: 20110831
  Serious: Yes (Other)
  Sender: FDA-Public Use
  Company Number: A0906922A

PATIENT
  Age: 61 Year
  Sex: Female
  Weight: 150 kg

DRUGS (5)
  1. VENTOLIN [Concomitant]
  2. UNKNOWN [Concomitant]
  3. ADVAIR [Suspect]
     Indication: ASTHMA
     Dosage: 1PUFF TWICE PER DAY
     Route: 055
  4. SINGULAIR [Concomitant]
  5. QVAR 40 [Concomitant]

REACTIONS (1)
  - MACULAR DEGENERATION [None]
